FAERS Safety Report 7254508 (Version 4)
Quarter: 2013Q1

REPORT INFORMATION
  Report Type: Report from Study
  Country: US (occurrence: US)
  Receive Date: 20100125
  Receipt Date: 20130116
  Transmission Date: 20140127
  Serious: Yes (Death)
  Sender: FDA-Public Use
  Company Number: US-ROCHE-680701

PATIENT
  Sex: Male
  Weight: 59.02 kg

DRUGS (1)
  1. CAPECITABINE [Suspect]
     Indication: GASTROINTESTINAL CARCINOMA
     Dosage: ROUTE: BY MOUTH
     Route: 048
     Dates: start: 20090422, end: 20091123

REACTIONS (1)
  - Oesophageal carcinoma [Fatal]
